FAERS Safety Report 18013118 (Version 4)
Quarter: 2021Q2

REPORT INFORMATION
  Report Type: Spontaneous
  Country: US (occurrence: US)
  Receive Date: 20200713
  Receipt Date: 20210405
  Transmission Date: 20210717
  Serious: Yes (Other)
  Sender: FDA-Public Use
  Company Number: US-PFIZER INC-2020264651

PATIENT
  Age: 77 Year
  Sex: Female

DRUGS (1)
  1. IBRANCE [Suspect]
     Active Substance: PALBOCICLIB
     Indication: BREAST CANCER FEMALE
     Dosage: 125 MG

REACTIONS (6)
  - Tooth fracture [Unknown]
  - Asthenia [Not Recovered/Not Resolved]
  - Trichorrhexis [Unknown]
  - Tooth disorder [Unknown]
  - Dry skin [Unknown]
  - Hair texture abnormal [Unknown]
